FAERS Safety Report 5489941-4 (Version None)
Quarter: 2007Q4

REPORT INFORMATION
  Report Type: 
  Country: None (occurrence: None)
  Receive Date: 20071018
  Receipt Date: 20071008
  Transmission Date: 20080405
  Serious: Yes (Life-Threatening, Hospitalization)
  Sender: FDA-Public Use
  Company Number: FR-PFIZER INC-2007085267

PATIENT
  Sex: Female
  Weight: 90 kg

DRUGS (10)
  1. TRIFLUCAN [Suspect]
     Indication: CANDIDIASIS
     Dosage: DAILY DOSE:400MG
     Route: 048
     Dates: start: 20070705, end: 20070723
  2. GLEEVEC [Suspect]
     Route: 048
     Dates: start: 20070615, end: 20070626
  3. GLEEVEC [Suspect]
     Dates: start: 20070719, end: 20070802
  4. FRAXODI [Suspect]
     Indication: THROMBOPHLEBITIS
     Dosage: DAILY DOSE:.8ML
     Route: 058
     Dates: start: 20070716, end: 20070802
  5. CYCLOPHOSPHAMIDE [Concomitant]
  6. DOXORUBICIN HYDROCHLORIDE [Concomitant]
  7. VINCRISTINE SULFATE [Concomitant]
  8. DEXAMETHASONE [Concomitant]
  9. PERINDOPRIL ERBUMINE [Concomitant]
  10. NICARDIPINE HCL [Concomitant]

REACTIONS (2)
  - SUBDURAL HAEMATOMA [None]
  - THROMBOCYTOPENIA [None]
